FAERS Safety Report 6106632-7 (Version None)
Quarter: 2009Q1

REPORT INFORMATION
  Report Type: 
  Country: None (occurrence: None)
  Receive Date: 20090306
  Receipt Date: 20090225
  Transmission Date: 20090719
  Serious: Yes (Other)
  Sender: FDA-Public Use
  Company Number: US-JNJCH-2009005414

PATIENT
  Age: 19 Year
  Sex: Female
  Weight: 63.5 kg

DRUGS (1)
  1. LISTERINE WHITENING QUICK DISSOLVING STRIPS [Suspect]
     Indication: DENTAL CARE
     Dosage: TEXT:ONE STRIP ONCE TO TWICE PER WEEK
     Route: 048
     Dates: start: 20081201, end: 20090225

REACTIONS (4)
  - APPLICATION SITE BURN [None]
  - APPLICATION SITE PAIN [None]
  - GINGIVAL DISCOLOURATION [None]
  - GINGIVAL PAIN [None]
